FAERS Safety Report 8951132 (Version 1)
Quarter: 2012Q4

REPORT INFORMATION
  Report Type: Spontaneous
  Country: US (occurrence: None)
  Receive Date: 20121105
  Receipt Date: 20121105
  Transmission Date: 20130627
  Serious: Yes (Hospitalization)
  Sender: FDA-Public Use
  Company Number: 2012PROUSA02113

PATIENT
  Age: 80 Year
  Sex: Male
  Weight: 77.6 kg

DRUGS (1)
  1. PROVENGE (SIPULEUCEL-T) SUSPENSION, 250ML [Suspect]
     Indication: PROSTATE CANCER METASTATIC
     Dosage: single
     Route: 042
     Dates: start: 20120830, end: 20120830

REACTIONS (1)
  - Cardiac failure congestive [None]
